FAERS Safety Report 12499611 (Version 2)
Quarter: 2016Q3

REPORT INFORMATION
  Report Type: Spontaneous
  Country: DE (occurrence: DE)
  Receive Date: 20160627
  Receipt Date: 20160705
  Transmission Date: 20161109
  Serious: Yes (Other)
  Sender: FDA-Public Use
  Company Number: DE-BIOGEN-2016BI00256667

PATIENT
  Age: 0 Day
  Sex: Male
  Weight: 3.76 kg

DRUGS (1)
  1. TYSABRI [Suspect]
     Active Substance: NATALIZUMAB
     Indication: MATERNAL EXPOSURE TIMING UNSPECIFIED
     Route: 064
     Dates: start: 20130821

REACTIONS (3)
  - Foetal exposure during pregnancy [Recovered/Resolved]
  - Anaemia neonatal [Recovered/Resolved]
  - Thrombocytopenia neonatal [Unknown]

NARRATIVE: CASE EVENT DATE: 201604
